FAERS Safety Report 9838528 (Version 2)
Quarter: 2014Q1

REPORT INFORMATION
  Report Type: Spontaneous
  Country: US (occurrence: US)
  Receive Date: 20140123
  Receipt Date: 20140226
  Transmission Date: 20141002
  Serious: Yes (Hospitalization, Other)
  Sender: FDA-Public Use
  Company Number: US-PFIZER INC-2014021380

PATIENT
  Age: 42 Year
  Sex: Male
  Weight: 105 kg

DRUGS (6)
  1. CHANTIX [Suspect]
     Indication: SMOKING CESSATION THERAPY
     Dosage: UNK
     Dates: start: 2009
  2. CHANTIX [Suspect]
     Dosage: UNK
     Dates: start: 2010
  3. PERCOCET [Concomitant]
     Indication: MUSCULOSKELETAL PAIN
     Dosage: ACETAMINOPHEN 5MG/OXYCODONE 325MG, AS NEEDED
  4. PERCOCET [Concomitant]
     Indication: ARTHRALGIA
  5. CYCLOBENZAPRINE [Concomitant]
     Indication: MUSCULOSKELETAL PAIN
     Dosage: 20 MG, 2X/DAY
  6. CYCLOBENZAPRINE [Concomitant]
     Indication: ARTHRALGIA

REACTIONS (1)
  - Spinal disorder [Recovering/Resolving]
